FAERS Safety Report 5401383-6 (Version None)
Quarter: 2007Q3

REPORT INFORMATION
  Report Type: 
  Country: None (occurrence: None)
  Receive Date: 20070731
  Receipt Date: 20070724
  Transmission Date: 20080115
  Serious: Yes (Life-Threatening, Hospitalization)
  Sender: FDA-Public Use
  Company Number: B0481460A

PATIENT
  Age: 83 Year
  Sex: Female

DRUGS (9)
  1. CEFUROXIME [Suspect]
     Dosage: 1G PER DAY
     Route: 048
     Dates: start: 20070519, end: 20070520
  2. NEUPRO [Suspect]
     Dosage: 2MG PER DAY
     Route: 062
     Dates: start: 20070514, end: 20070520
  3. DILUTOL [Suspect]
     Indication: ESSENTIAL HYPERTENSION
     Dosage: 5MG PER DAY
     Route: 048
     Dates: start: 20070516, end: 20070520
  4. AMERIDE [Suspect]
     Indication: DRUG USE FOR UNKNOWN INDICATION
     Dosage: 100MG PER DAY
     Route: 048
  5. RISPERDAL [Suspect]
     Indication: SENILE DEMENTIA
     Route: 048
     Dates: end: 20070514
  6. RIVASTIGMINE [Concomitant]
     Indication: SENILE DEMENTIA
     Dosage: 12MG PER DAY
     Route: 048
  7. OMEPRAZOLE [Concomitant]
     Dosage: 20MG PER DAY
     Route: 048
  8. LOFTON [Concomitant]
     Dosage: 300MG PER DAY
     Route: 048
  9. ADIRO [Concomitant]
     Dosage: 100MG PER DAY
     Route: 048

REACTIONS (3)
  - ANTIDIURETIC HORMONE ABNORMALITY [None]
  - CONSTIPATION [None]
  - HYPONATRAEMIA [None]
